FAERS Safety Report 8402514-6 (Version None)
Quarter: 2012Q2

REPORT INFORMATION
  Report Type: 
  Country: None (occurrence: None)
  Receive Date: 20120601
  Receipt Date: 20120527
  Transmission Date: 20120825
  Serious: Yes (Death, Other)
  Sender: FDA-Public Use
  Company Number: PHEH2012US009079

PATIENT

DRUGS (1)
  1. GLEEVEC [Suspect]
     Indication: CHRONIC MYELOID LEUKAEMIA
     Dosage: UNK

REACTIONS (5)
  - WHITE BLOOD CELL COUNT INCREASED [None]
  - DRUG INEFFECTIVE [None]
  - CHRONIC MYELOID LEUKAEMIA [None]
  - DEATH [None]
  - NEOPLASM MALIGNANT [None]
